FAERS Safety Report 4677383-0 (Version None)
Quarter: 2005Q2

REPORT INFORMATION
  Report Type: 
  Country: None (occurrence: None)
  Receive Date: 20050526
  Receipt Date: 20050526
  Transmission Date: 20051028
  Serious: Yes (Other)
  Sender: FDA-Public Use
  Company Number: None

PATIENT
  Age: 50 Year
  Sex: Female
  Weight: 92.9874 kg

DRUGS (1)
  1. CYMBALTA [Suspect]
     Indication: DEPRESSION
     Dosage: 1/DAY ORAL
     Route: 048
     Dates: start: 20050301, end: 20050401

REACTIONS (3)
  - FEELING ABNORMAL [None]
  - HYPERTENSION [None]
  - INFLUENZA LIKE ILLNESS [None]
